FAERS Safety Report 10152038 (Version 1)
Quarter: 2014Q2

REPORT INFORMATION
  Report Type: Spontaneous
  Country: BE (occurrence: None)
  Receive Date: 20140501
  Receipt Date: 20140501
  Transmission Date: 20141212
  Serious: Yes (Life-Threatening)
  Sender: FDA-Public Use
  Company Number: 2319148

PATIENT
  Age: 46 Year
  Sex: Male

DRUGS (4)
  1. PROPOFOL [Suspect]
     Indication: GENERAL ANAESTHESIA
  2. SUFENTANIL [Suspect]
     Indication: GENERAL ANAESTHESIA
  3. CISATRACURIUM [Suspect]
     Indication: GENERAL ANAESTHESIA
  4. SEVOFLURANE [Suspect]
     Indication: MAINTENANCE OF ANAESTHESIA
     Dosage: RESPIRATORY

REACTIONS (1)
  - Hyperthermia malignant [None]
